FAERS Safety Report 8472718-5 (Version None)
Quarter: 2012Q2

REPORT INFORMATION
  Report Type: 
  Country: None (occurrence: None)
  Receive Date: 20120323
  Receipt Date: 20111025
  Transmission Date: 20120825
  Serious: Yes (Hospitalization)
  Sender: FDA-Public Use
  Company Number: 163-21880-11103016

PATIENT
  Age: 69 Year
  Sex: Female

DRUGS (3)
  1. OMEPRAZOLE [Concomitant]
  2. REVLIMID [Suspect]
     Indication: MULTIPLE MYELOMA
     Dosage: 25 MG, DAILY X 21 DAYS, PO
     Route: 048
     Dates: start: 20110801
  3. LIPITOR [Concomitant]

REACTIONS (2)
  - PNEUMONIA BACTERIAL [None]
  - DYSPNOEA [None]
